FAERS Safety Report 5451439-7 (Version None)
Quarter: 2007Q3

REPORT INFORMATION
  Report Type: 
  Country: None (occurrence: None)
  Receive Date: 20070913
  Receipt Date: 20070911
  Transmission Date: 20080115
  Serious: Yes (Other)
  Sender: FDA-Public Use
  Company Number: D0054100A

PATIENT
  Sex: Female

DRUGS (1)
  1. HYCAMTIN [Suspect]
     Indication: OVARIAN CANCER
     Route: 065

REACTIONS (3)
  - ANGIOEDEMA [None]
  - DERMATOMYOSITIS [None]
  - SYSTEMIC LUPUS ERYTHEMATOSUS [None]
